FAERS Safety Report 24976330 (Version 1)
Quarter: 2025Q1

REPORT INFORMATION
  Report Type: Report from Study
  Country: US (occurrence: None)
  Receive Date: 20250217
  Receipt Date: 20250217
  Transmission Date: 20250408
  Serious: No
  Sender: ALEXION PHARMACEUTICALS
  Company Number: US-AstraZeneca-2014SE46681

PATIENT
  Age: 54 Year
  Weight: 81.647 kg

DRUGS (1)
  1. NEXIUM [Suspect]
     Active Substance: ESOMEPRAZOLE MAGNESIUM
     Indication: Gastrooesophageal reflux disease
     Dosage: 40 MILLIGRAM, QD

REACTIONS (4)
  - Gastrooesophageal reflux disease [Unknown]
  - Hypoacusis [Unknown]
  - Vomiting [Unknown]
  - Product dose omission issue [Unknown]
